FAERS Safety Report 17450821 (Version 1)
Quarter: 2020Q1

REPORT INFORMATION
  Report Type: Spontaneous
  Country: US (occurrence: US)
  Receive Date: 20200224
  Receipt Date: 20200224
  Transmission Date: 20200409
  Serious: No
  Sender: FDA-Public Use
  Company Number: US-ASTRAZENECA-2020SE16131

PATIENT
  Sex: Female

DRUGS (1)
  1. BYDUREON BCISE [Suspect]
     Active Substance: EXENATIDE
     Indication: TYPE 2 DIABETES MELLITUS
     Route: 058
     Dates: start: 201912

REACTIONS (5)
  - Injection site mass [Not Recovered/Not Resolved]
  - Circumstance or information capable of leading to medication error [Unknown]
  - Pruritus [Not Recovered/Not Resolved]
  - Injection site haemorrhage [Unknown]
  - Erythema [Not Recovered/Not Resolved]
